FAERS Safety Report 16651020 (Version 1)
Quarter: 2019Q3

REPORT INFORMATION
  Report Type: Spontaneous
  Country: US (occurrence: US)
  Receive Date: 20190731
  Receipt Date: 20190731
  Transmission Date: 20191004
  Serious: No
  Sender: FDA-Public Use
  Company Number: US-DRREDDYS-USA/USA/18/0103453

PATIENT
  Age: 61 Year
  Sex: Female

DRUGS (1)
  1. LETROZOLE TABLETS, USP 2.5 MG [Suspect]
     Active Substance: LETROZOLE
     Indication: BREAST CANCER
     Dosage: 2.5 MG/D FOR THE LAST 3 YEARS
     Route: 048

REACTIONS (1)
  - Osteoma cutis [Unknown]
